FAERS Safety Report 9280059 (Version 1)
Quarter: 2013Q2

REPORT INFORMATION
  Report Type: Report from Study
  Country: CA (occurrence: CA)
  Receive Date: 20130509
  Receipt Date: 20130509
  Transmission Date: 20140414
  Serious: Yes (Hospitalization)
  Sender: FDA-Public Use
  Company Number: CA-JNJFOC-20130416500

PATIENT
  Age: 25 Year
  Sex: Male
  Weight: 65.3 kg

DRUGS (2)
  1. REMICADE [Suspect]
     Indication: CROHN^S DISEASE
     Route: 042
     Dates: start: 20121219
  2. IMURAN [Suspect]
     Indication: PRODUCT USED FOR UNKNOWN INDICATION
     Dosage: INITIATED PRIOR TO INFLIXIMAB INFUSION ADMINISTERD LAST BEFORE THE EVENT
     Route: 065

REACTIONS (5)
  - Pancreatic enzymes increased [Recovered/Resolved]
  - Hypokalaemia [Recovered/Resolved]
  - Aphagia [Recovered/Resolved]
  - Pyrexia [Recovered/Resolved]
  - Tremor [Recovered/Resolved]
